FAERS Safety Report 4966060-4 (Version None)
Quarter: 2006Q2

REPORT INFORMATION
  Report Type: 
  Country: None (occurrence: None)
  Receive Date: 20060403
  Receipt Date: 20060320
  Transmission Date: 20061013
  Serious: Yes (Hospitalization, Other)
  Sender: FDA-Public Use
  Company Number: 2006P1000050

PATIENT
  Age: 60 Year
  Sex: Male
  Weight: 76 kg

DRUGS (3)
  1. RETEPLASE                    (RETEPLASE) [Suspect]
     Indication: ACUTE MYOCARDIAL INFARCTION
     Dosage: 5 IU; X1; IVB
     Route: 049
     Dates: start: 20051118, end: 20051118
  2. REOPRO [Suspect]
     Indication: ACUTE MYOCARDIAL INFARCTION
     Dosage: SEE IMAGE, IVB
     Route: 040
     Dates: start: 20051118, end: 20051118
  3. HEPARIN [Concomitant]

REACTIONS (2)
  - CORONARY ARTERY DISEASE [None]
  - MYOCARDIAL ISCHAEMIA [None]
